FAERS Safety Report 4522739-X (Version None)
Quarter: 2004Q4

REPORT INFORMATION
  Report Type: 
  Country: None (occurrence: None)
  Receive Date: 20041207
  Receipt Date: 20041202
  Transmission Date: 20050328
  Serious: Yes (Life-Threatening)
  Sender: FDA-Public Use
  Company Number: 2004-122807-NL

PATIENT
  Age: 45 Year
  Sex: Female

DRUGS (4)
  1. VECURONIUM BROMIDE [Suspect]
     Dosage: 4 MG ONCE; ITNRAVNEOUS (NOS)
     Route: 042
     Dates: start: 20000526, end: 20000526
  2. MIDAZOAM HYDROCHLORIDE [Concomitant]
  3. PROPOFOL [Concomitant]
  4. ALFENTANIL HYDROCHLORIDE [Concomitant]

REACTIONS (3)
  - ANAPHYLACTIC SHOCK [None]
  - DIARRHOEA [None]
  - SKIN TEST POSITIVE [None]
